FAERS Safety Report 8181260-0 (Version None)
Quarter: 2012Q1

REPORT INFORMATION
  Report Type: 
  Country: None (occurrence: None)
  Receive Date: 20120302
  Receipt Date: 20120223
  Transmission Date: 20120608
  Serious: Yes (Other)
  Sender: FDA-Public Use
  Company Number: US-BAYER-2011-053257

PATIENT
  Age: 37 Year
  Sex: Female
  Weight: 108.84 kg

DRUGS (17)
  1. LEXAPRO [Concomitant]
  2. YAZ [Suspect]
     Indication: PREMENSTRUAL SYNDROME
  3. YAZ [Suspect]
  4. FLUTICASONE PROPIONATE [Concomitant]
  5. SINGULAIR [Concomitant]
     Indication: HYPERSENSITIVITY
     Dosage: UNK UNK, QD
     Dates: start: 20010101
  6. SINGULAIR [Concomitant]
     Indication: ASTHMA
  7. ZOLOFT [Concomitant]
     Indication: PREMENSTRUAL SYNDROME
  8. YAZ [Suspect]
     Indication: CONTRACEPTION
     Dosage: UNK
     Dates: start: 20080528, end: 20090609
  9. IBUPROFEN TABLETS [Concomitant]
     Dosage: UNK
     Dates: start: 19990101
  10. EPIPEN [Concomitant]
     Indication: ALLERGY TO ANIMAL
  11. ZYRTEC [Concomitant]
     Indication: HYPERSENSITIVITY
     Dosage: UNK UNK, QD
     Dates: start: 20010101
  12. ZYRTEC [Concomitant]
     Indication: ASTHMA
  13. LEXAPRO [Concomitant]
     Indication: PREMENSTRUAL SYNDROME
     Dosage: UNK
     Dates: start: 20080101, end: 20090101
  14. ZOLOFT [Concomitant]
  15. ZOLOFT [Concomitant]
     Indication: DEPRESSION
  16. PROAIR HFA [Concomitant]
     Indication: HYPERSENSITIVITY
     Dosage: UNK UNK, PRN
     Dates: start: 20010101
  17. PROAIR HFA [Concomitant]
     Indication: ASTHMA

REACTIONS (9)
  - DEEP VEIN THROMBOSIS [None]
  - PAIN [None]
  - INJURY [None]
  - ANXIETY [None]
  - ANHEDONIA [None]
  - PSYCHOLOGICAL TRAUMA [None]
  - EMOTIONAL DISTRESS [None]
  - FEAR [None]
  - DEPRESSION [None]
